FAERS Safety Report 12435335 (Version 1)
Quarter: 2016Q2

REPORT INFORMATION
  Report Type: Spontaneous
  Country: US (occurrence: US)
  Receive Date: 20160603
  Receipt Date: 20160603
  Transmission Date: 20160815
  Serious: Yes (Other)
  Sender: FDA-Public Use
  Company Number: US-ROCHE-1669406

PATIENT
  Sex: Male

DRUGS (4)
  1. XELODA [Suspect]
     Active Substance: CAPECITABINE
     Indication: NEOPLASM MALIGNANT
     Route: 048
     Dates: start: 20151112
  2. XELODA [Suspect]
     Active Substance: CAPECITABINE
     Dosage: 3 TABLET?FOR 14 DAYS THEN 7 DAYS OFF + REPEAT CYCLE
     Route: 048
     Dates: start: 20140916
  3. XELODA [Suspect]
     Active Substance: CAPECITABINE
     Dosage: BIDX7
     Route: 048
     Dates: start: 20141028
  4. XELODA [Suspect]
     Active Substance: CAPECITABINE
     Route: 048
     Dates: start: 20140816

REACTIONS (3)
  - Fatigue [Not Recovered/Not Resolved]
  - Diarrhoea [Not Recovered/Not Resolved]
  - Asthenia [Unknown]
